FAERS Safety Report 24387202 (Version 1)
Quarter: 2024Q4

REPORT INFORMATION
  Report Type: Spontaneous
  Country: US (occurrence: US)
  Receive Date: 20241002
  Receipt Date: 20241002
  Transmission Date: 20250114
  Serious: No
  Sender: QOL
  Company Number: US-QOL Medical, LLC-2162351

PATIENT
  Age: 75 Year
  Sex: Female

DRUGS (11)
  1. SUCRAID [Suspect]
     Active Substance: SACROSIDASE
     Dates: start: 20231007
  2. XIFAXAN [Concomitant]
     Active Substance: RIFAXIMIN
  3. FISH OIL [Concomitant]
     Active Substance: FISH OIL
  4. BIOTIN [Concomitant]
     Active Substance: BIOTIN
  5. TOPAMAX [Concomitant]
     Active Substance: TOPIRAMATE
  6. EFFEXOR XR [Concomitant]
     Active Substance: VENLAFAXINE HYDROCHLORIDE
  7. LYRICA [Concomitant]
     Active Substance: PREGABALIN
  8. LISINOPRIL [Concomitant]
     Active Substance: LISINOPRIL
  9. CRESTOR [Concomitant]
     Active Substance: ROSUVASTATIN CALCIUM
  10. CELEBREX [Concomitant]
     Active Substance: CELECOXIB
  11. ROBAXIN [Concomitant]
     Active Substance: METHOCARBAMOL

REACTIONS (1)
  - Alopecia [Unknown]

NARRATIVE: CASE EVENT DATE: 20231122
